FAERS Safety Report 25277275 (Version 1)
Quarter: 2025Q2

REPORT INFORMATION
  Report Type: Other
  Country: JP (occurrence: JP)
  Receive Date: 20250507
  Receipt Date: 20250507
  Transmission Date: 20250717
  Serious: Yes (Other)
  Sender: CAPLIN STERILES LIMITED
  Company Number: JP-Caplin Steriles Limited-2176315

PATIENT
  Age: 20 Year
  Sex: Male

DRUGS (9)
  1. LEVETIRACETAM [Suspect]
     Active Substance: LEVETIRACETAM
     Indication: Tonic convulsion
  2. DIAZEPAM [Concomitant]
     Active Substance: DIAZEPAM
  3. Ringers Lactate Solution [Concomitant]
  4. AMPICILLIN AND SULBACTAM [Concomitant]
     Active Substance: AMPICILLIN SODIUM\SULBACTAM SODIUM
  5. VALPROIC ACID [Concomitant]
     Active Substance: VALPROIC ACID
  6. TRIAZOLAM [Concomitant]
     Active Substance: TRIAZOLAM
  7. MIDAZOLAM [Concomitant]
     Active Substance: MIDAZOLAM
  8. LORAZEPAM [Concomitant]
     Active Substance: LORAZEPAM
  9. FLUNITRAZEPAM [Concomitant]
     Active Substance: FLUNITRAZEPAM

REACTIONS (1)
  - Rhabdomyolysis [Recovered/Resolved]
